FAERS Safety Report 4395430-0 (Version None)
Quarter: 2004Q3

REPORT INFORMATION
  Report Type: 
  Country: None (occurrence: None)
  Receive Date: 20040708
  Receipt Date: 20040630
  Transmission Date: 20050211
  Serious: Yes (Hospitalization, Other)
  Sender: FDA-Public Use
  Company Number: 2004219496US

PATIENT
  Age: 73 Year
  Sex: Female

DRUGS (4)
  1. CELEBREX [Suspect]
     Indication: ARTHRITIS
     Dosage: 200 MG, QD
     Dates: start: 20021001, end: 20040603
  2. LEVOXYL [Concomitant]
  3. COUMADIN [Concomitant]
  4. VERAPAMIL [Concomitant]

REACTIONS (2)
  - GASTRIC DISORDER [None]
  - HEPATITIS [None]
